FAERS Safety Report 7020323-X (Version None)
Quarter: 2010Q3

REPORT INFORMATION
  Report Type: 
  Country: None (occurrence: None)
  Receive Date: 20100929
  Receipt Date: 20100921
  Transmission Date: 20110219
  Serious: Yes (Hospitalization, Other)
  Sender: FDA-Public Use
  Company Number: US-JNJFOC-20100907205

PATIENT
  Sex: Female

DRUGS (13)
  1. SANDOZ FENTANYL TRANSDERMAL SYSTEM [Suspect]
     Indication: BACK PAIN
     Route: 062
  2. SANDOZ FENTANYL TRANSDERMAL SYSTEM [Suspect]
     Route: 062
  3. SANDOZ FENTANYL TRANSDERMAL SYSTEM [Suspect]
     Route: 062
  4. SANDOZ FENTANYL TRANSDERMAL SYSTEM [Suspect]
     Route: 062
  5. SANDOZ FENTANYL TRANSDERMAL SYSTEM [Suspect]
     Indication: NECK PAIN
     Route: 062
  6. SANDOZ FENTANYL TRANSDERMAL SYSTEM [Suspect]
     Route: 062
  7. SANDOZ FENTANYL TRANSDERMAL SYSTEM [Suspect]
     Route: 062
  8. SANDOZ FENTANYL TRANSDERMAL SYSTEM [Suspect]
     Route: 062
  9. SANDOZ FENTANYL TRANSDERMAL SYSTEM [Suspect]
     Route: 062
  10. SANDOZ FENTANYL TRANSDERMAL SYSTEM [Suspect]
     Route: 062
  11. CYMBALTA [Suspect]
     Indication: PRODUCT USED FOR UNKNOWN INDICATION
     Route: 065
  12. DEMEROL [Concomitant]
     Indication: BREAKTHROUGH PAIN
     Route: 048
  13. TRAMADOL [Concomitant]
     Indication: BREAKTHROUGH PAIN
     Route: 048

REACTIONS (9)
  - CRYING [None]
  - INSOMNIA [None]
  - MUSCULAR WEAKNESS [None]
  - NEURALGIA [None]
  - PRURITUS [None]
  - SLEEP APNOEA SYNDROME [None]
  - VIOLENCE-RELATED SYMPTOM [None]
  - WITHDRAWAL SYNDROME [None]
  - WRONG TECHNIQUE IN DRUG USAGE PROCESS [None]
